FAERS Safety Report 9047467 (Version 1)
Quarter: 2013Q1

REPORT INFORMATION
  Report Type: Report from Study
  Country: US (occurrence: US)
  Receive Date: 20130201
  Receipt Date: 20130201
  Transmission Date: 20140127
  Serious: No
  Sender: FDA-Public Use
  Company Number: US-ABBOTT-12P-163-1026420-00

PATIENT
  Sex: Male

DRUGS (5)
  1. HUMIRA [Suspect]
     Indication: PSORIASIS
     Dates: start: 201209, end: 201209
  2. HUMIRA [Suspect]
     Indication: PSORIATIC ARTHROPATHY
     Dosage: 1 WEEK AFTER INITIAL
     Dates: start: 201209, end: 201209
  3. HUMIRA [Suspect]
     Dates: start: 201209, end: 201211
  4. HUMIRA [Suspect]
     Dates: start: 201211
  5. INH [Concomitant]
     Indication: TUBERCULOSIS

REACTIONS (3)
  - Expired drug administered [Recovered/Resolved]
  - Psoriasis [Recovered/Resolved]
  - Drug administration error [Recovered/Resolved]
